FAERS Safety Report 8524791-3 (Version None)
Quarter: 2012Q3

REPORT INFORMATION
  Report Type: 
  Country: None (occurrence: None)
  Receive Date: 20120720
  Receipt Date: 20120717
  Transmission Date: 20120928
  Serious: Yes (Life-Threatening, Hospitalization, Other)
  Sender: FDA-Public Use
  Company Number: US-GLAXOSMITHKLINE-A0984791A

PATIENT
  Age: 76 Year
  Sex: Female

DRUGS (2)
  1. TYKERB [Suspect]
     Indication: BREAST CANCER METASTATIC
     Dosage: 5TAB PER DAY
     Route: 048
     Dates: start: 20120101, end: 20120716
  2. ANTIEMETICS [Concomitant]

REACTIONS (1)
  - DISEASE PROGRESSION [None]
